FAERS Safety Report 10021875 (Version 2)
Quarter: 2014Q1

REPORT INFORMATION
  Report Type: Spontaneous
  Country: FR (occurrence: FR)
  Receive Date: 20140319
  Receipt Date: 20140319
  Transmission Date: 20141002
  Serious: Yes (Other)
  Sender: FDA-Public Use
  Company Number: FR-BRISTOL-MYERS SQUIBB COMPANY-19725522

PATIENT
  Age: 36 Year
  Sex: Female

DRUGS (2)
  1. ABILIFY TABS 15 MG [Suspect]
     Indication: AFFECTIVE DISORDER
     Dosage: ONE YR AGO:15MG?DOSE REDUCED TO 5MG
     Dates: start: 200901
  2. ESOMEPRAZOLE [Concomitant]

REACTIONS (2)
  - Flat affect [Not Recovered/Not Resolved]
  - Off label use [Unknown]
